FAERS Safety Report 10967886 (Version 1)
Quarter: 2015Q1

REPORT INFORMATION
  Report Type: Spontaneous
  Country: US (occurrence: US)
  Receive Date: 20150330
  Receipt Date: 20150330
  Transmission Date: 20150721
  Serious: Yes (Other)
  Sender: FDA-Public Use
  Company Number: US-GLAXOSMITHKLINE-US2015041112

PATIENT
  Age: 71 Year
  Sex: Female

DRUGS (11)
  1. IODINE [Concomitant]
     Active Substance: IODINE
  2. DIFICID [Concomitant]
     Active Substance: FIDAXOMICIN
  3. RYTHMOL [Suspect]
     Active Substance: PROPAFENONE HYDROCHLORIDE
     Indication: CARDIAC DISORDER
     Route: 048
  4. AMOXICILLIN. [Concomitant]
     Active Substance: AMOXICILLIN
  5. SYNTHROID [Concomitant]
     Active Substance: LEVOTHYROXINE SODIUM
  6. LEVOTHYROXINE SODIUM. [Concomitant]
     Active Substance: LEVOTHYROXINE SODIUM
  7. TRIMETHOPRIM. [Concomitant]
     Active Substance: TRIMETHOPRIM
  8. RYTHMOL SR [Suspect]
     Active Substance: PROPAFENONE HYDROCHLORIDE
     Indication: CARDIAC DISORDER
     Dosage: 225 MG, BID
     Route: 048
  9. KEFLEX [Concomitant]
     Active Substance: CEPHALEXIN
  10. ARMOUR THYROID [Concomitant]
     Active Substance: THYROID, PORCINE\THYROID, UNSPECIFIED
  11. OREGANO OIL [Concomitant]

REACTIONS (10)
  - Diarrhoea [Recovered/Resolved]
  - Pseudomonas infection [Recovered/Resolved]
  - Mucous stools [Recovered/Resolved]
  - Urinary tract infection [Unknown]
  - Clostridium difficile infection [Recovered/Resolved]
  - Bowel movement irregularity [Recovering/Resolving]
  - Palpitations [Recovered/Resolved]
  - Klebsiella infection [Recovered/Resolved]
  - Constipation [Recovered/Resolved]
  - Dizziness [Recovered/Resolved]

NARRATIVE: CASE EVENT DATE: 20150210
